FAERS Safety Report 13076851 (Version 1)
Quarter: 2016Q4

REPORT INFORMATION
  Report Type: Spontaneous
  Country: US (occurrence: US)
  Receive Date: 20161230
  Receipt Date: 20161230
  Transmission Date: 20170207
  Serious: Yes (Life-Threatening, Hospitalization, Disabling, Other)
  Sender: FDA-Public Use
  Company Number: None

PATIENT
  Age: 53 Year
  Sex: Female
  Weight: 65.2 kg

DRUGS (4)
  1. NEURONTIN [Concomitant]
     Active Substance: GABAPENTIN
  2. MULTIVITAMINS [Concomitant]
     Active Substance: VITAMINS
  3. VITAMIN D [Concomitant]
     Active Substance: CHOLECALCIFEROL
  4. LEVOMETHADYL ACETATE. [Suspect]
     Active Substance: LEVOMETHADYL ACETATE
     Indication: DRUG DEPENDENCE
     Route: 048
     Dates: start: 19990815, end: 19990815

REACTIONS (4)
  - Loss of consciousness [None]
  - Unresponsive to stimuli [None]
  - Skin lesion [None]
  - Renal failure [None]

NARRATIVE: CASE EVENT DATE: 19990815
